FAERS Safety Report 25953244 (Version 1)
Quarter: 2025Q4

REPORT INFORMATION
  Report Type: Spontaneous
  Country: US (occurrence: US)
  Receive Date: 20251023
  Receipt Date: 20251023
  Transmission Date: 20260117
  Serious: Yes (Hospitalization, Other)
  Sender: ARGENX BVBA
  Company Number: US-ARGENX-2025-ARGX-US014231

PATIENT

DRUGS (1)
  1. VYVGART HYTRULO [Suspect]
     Active Substance: EFGARTIGIMOD ALFA\HYALURONIDASE-QVFC
     Indication: Myasthenia gravis
     Dosage: UNK, 4 WEEKS ON 4 WEEKS OFF DOSING
     Route: 058

REACTIONS (5)
  - Viral upper respiratory tract infection [Unknown]
  - Myasthenia gravis [Unknown]
  - Eyelid ptosis [Unknown]
  - Dysphagia [Unknown]
  - Mastication disorder [Unknown]
